FAERS Safety Report 8720564 (Version 2)
Quarter: 2015Q2

REPORT INFORMATION
  Report Type: Report from Study
  Country: US (occurrence: US)
  Receive Date: 20120813
  Receipt Date: 20150625
  Transmission Date: 20150821
  Serious: Yes (Death)
  Sender: FDA-Public Use
  Company Number: US-ROCHE-1098815

PATIENT
  Age: 56 Year
  Sex: Male

DRUGS (11)
  1. ACTIVASE [Suspect]
     Active Substance: ALTEPLASE
     Indication: MYOCARDIAL INFARCTION
     Route: 065
     Dates: start: 19910718
  2. ASPIRIN. [Concomitant]
     Active Substance: ASPIRIN
     Route: 048
  3. MYLANTA [Concomitant]
     Active Substance: ALUMINUM HYDROXIDE\MAGNESIUM HYDROXIDE\SIMETHICONE
     Route: 065
  4. ACTIVASE [Suspect]
     Active Substance: ALTEPLASE
     Route: 065
  5. EPINEPHRINE. [Concomitant]
     Active Substance: EPINEPHRINE
  6. SODIUM BICARBONATE. [Concomitant]
     Active Substance: SODIUM BICARBONATE
  7. HEPARIN [Concomitant]
     Active Substance: HEPARIN SODIUM
     Dosage: 1000 U/ML
     Route: 065
  8. NITROGLYCERIN. [Concomitant]
     Active Substance: NITROGLYCERIN
     Route: 042
  9. ATROPINE SULPHATE [Concomitant]
     Active Substance: ATROPINE SULFATE
     Route: 065
  10. DIAZEPAM. [Concomitant]
     Active Substance: DIAZEPAM
     Route: 065
  11. DOPAMINE [Concomitant]
     Active Substance: DOPAMINE\DOPAMINE HYDROCHLORIDE
     Route: 065

REACTIONS (1)
  - Cardio-respiratory arrest [Fatal]

NARRATIVE: CASE EVENT DATE: 19910718
